FAERS Safety Report 22520503 (Version 1)
Quarter: 2023Q2

REPORT INFORMATION
  Report Type: Spontaneous
  Country: US (occurrence: None)
  Receive Date: 20230603
  Receipt Date: 20230603
  Transmission Date: 20230722
  Serious: Yes (Hospitalization, Disabling, Other)
  Sender: FDA-Public Use
  Company Number: None

PATIENT
  Age: 42 Year
  Sex: Male
  Weight: 62.1 kg

DRUGS (6)
  1. LEVOFLOXACIN [Suspect]
     Active Substance: LEVOFLOXACIN
     Indication: Urinary tract infection
     Dosage: OTHER QUANTITY : 1 TABLET(S);?
     Route: 048
     Dates: start: 20220207, end: 20220421
  2. MIRTAZAPINE [Concomitant]
     Active Substance: MIRTAZAPINE
  3. METHIMAZOLE [Concomitant]
     Active Substance: METHIMAZOLE
  4. SERTRALINE [Concomitant]
     Active Substance: SERTRALINE HYDROCHLORIDE
  5. QUETIAPINE [Concomitant]
     Active Substance: QUETIAPINE
  6. VITAMIN D3 [Concomitant]
     Active Substance: CHOLECALCIFEROL

REACTIONS (7)
  - Pelvic floor dysfunction [None]
  - Incorrect dose administered [None]
  - Pathogen resistance [None]
  - Anaemia [None]
  - Gastrooesophageal reflux disease [None]
  - Tendonitis [None]
  - General physical health deterioration [None]
